FAERS Safety Report 4836749-6 (Version None)
Quarter: 2005Q4

REPORT INFORMATION
  Report Type: 
  Country: None (occurrence: None)
  Receive Date: 20051123
  Receipt Date: 20051115
  Transmission Date: 20060501
  Serious: Yes (Hospitalization)
  Sender: FDA-Public Use
  Company Number: DE-ABBOTT-05P-062-0317348-00

PATIENT
  Age: 54 Year
  Sex: Male

DRUGS (21)
  1. NIPOLEPT [Suspect]
     Indication: SCHIZOPHRENIA, PARANOID TYPE
     Route: 048
     Dates: start: 20030201, end: 20040602
  2. NIPOLEPT [Suspect]
     Route: 048
     Dates: start: 20040603, end: 20040603
  3. NIPOLEPT [Suspect]
     Route: 048
     Dates: start: 20040604, end: 20040604
  4. NIPOLEPT [Suspect]
     Route: 048
     Dates: start: 20040605, end: 20040609
  5. NIPOLEPT [Suspect]
     Route: 048
     Dates: start: 20040609, end: 20040610
  6. NIPOLEPT [Suspect]
     Route: 048
     Dates: start: 20040611, end: 20040614
  7. CLOZAPINE [Suspect]
     Indication: DRUG USE FOR UNKNOWN INDICATION
     Route: 048
     Dates: start: 20040521, end: 20040608
  8. CLOZAPINE [Suspect]
     Route: 048
     Dates: start: 20040609, end: 20040611
  9. CLOZAPINE [Suspect]
     Route: 048
     Dates: start: 20040612, end: 20040614
  10. OLANZAPINE [Suspect]
     Indication: DRUG USE FOR UNKNOWN INDICATION
     Route: 048
     Dates: start: 20030101
  11. OLANZAPINE [Suspect]
     Route: 048
     Dates: start: 20030701
  12. OLANZAPINE [Suspect]
     Route: 048
     Dates: start: 20040101
  13. ZUCLOPENTHIXOL HYDROCHLORIDE [Suspect]
     Indication: DRUG USE FOR UNKNOWN INDICATION
     Dates: start: 19980101
  14. RISPERIDONE [Suspect]
     Indication: DRUG USE FOR UNKNOWN INDICATION
     Dates: start: 20031001
  15. CHLORPROTHIXENE HYDROCHLORIDE [Concomitant]
     Indication: DRUG USE FOR UNKNOWN INDICATION
     Dates: end: 19960101
  16. SAROTEN [Concomitant]
     Indication: DRUG USE FOR UNKNOWN INDICATION
     Dates: end: 19960101
  17. LORAZEPAM [Concomitant]
     Indication: DRUG USE FOR UNKNOWN INDICATION
     Dates: end: 19960101
  18. HALOPERIDOL [Concomitant]
     Indication: DRUG USE FOR UNKNOWN INDICATION
  19. ISOPROMETHAZINE HYDROCHLORIDE [Concomitant]
     Indication: DRUG USE FOR UNKNOWN INDICATION
  20. FLUNITRAZEPAM [Concomitant]
     Indication: DRUG USE FOR UNKNOWN INDICATION
  21. LORAZEPAM [Concomitant]

REACTIONS (6)
  - ANXIETY [None]
  - COMMUNICATION DISORDER [None]
  - DEPRESSED LEVEL OF CONSCIOUSNESS [None]
  - FALL [None]
  - GRAND MAL CONVULSION [None]
  - MASKED FACIES [None]
